FAERS Safety Report 8660934 (Version 3)
Quarter: 2012Q4

REPORT INFORMATION
  Report Type: 
  Country: US (occurrence: US)
  Receive Date: 20120711
  Receipt Date: 20121102
  Transmission Date: 20130627
  Serious: No
  Sender: FDA-Public Use
  Company Number: US-PFIZER INC-2012165080

PATIENT
  Age: 85 Year
  Sex: Male
  Weight: 94.33 kg

DRUGS (7)
  1. GABAPENTIN [Suspect]
     Indication: NEUROPATHY PERIPHERAL
     Dosage: 600 mg, 4x/day
  2. GABAPENTIN [Suspect]
     Dosage: 300 mg, 3x/day
     Dates: start: 201202
  3. GABAPENTIN [Suspect]
     Dosage: 1200 mg, 3x/day
     Dates: start: 2012
  4. GABAPENTIN [Suspect]
     Dosage: 800 mg, 3x/day
     Dates: start: 2012
  5. GABAPENTIN [Suspect]
     Dosage: 600 mg, 3x/day
     Dates: start: 2012
  6. GABAPENTIN [Suspect]
     Dosage: 600 mg in morning and afternoon and half of 600mg by splitting the medication in night, 3x/day
     Dates: start: 2012
  7. QUINAPRIL [Concomitant]
     Indication: HYPERTENSION
     Dosage: 20 mg, daily

REACTIONS (3)
  - Therapeutic response decreased [Unknown]
  - Drug ineffective [Unknown]
  - Memory impairment [Not Recovered/Not Resolved]
